FAERS Safety Report 8576790-3 (Version None)
Quarter: 2012Q3

REPORT INFORMATION
  Report Type: 
  Country: None (occurrence: None)
  Receive Date: 20120807
  Receipt Date: 20120731
  Transmission Date: 20120928
  Serious: Yes (Death)
  Sender: FDA-Public Use
  Company Number: US-CELGENEUS-163-21880-12063370

PATIENT
  Sex: Male
  Weight: 84.353 kg

DRUGS (32)
  1. ADVIL [Concomitant]
     Dosage: 100 MILLIGRAM
     Route: 048
     Dates: start: 20101013
  2. OXYCONTIN [Concomitant]
     Dosage: 10 MILLIGRAM
     Route: 065
  3. TRAZODONE HCL [Concomitant]
     Dosage: 100 MILLIGRAM
     Route: 048
     Dates: start: 20101013
  4. HYDROCODONE BITARTRATE [Concomitant]
     Indication: PAIN
     Dosage: 5/500
     Route: 065
  5. TRAZODONE HCL [Concomitant]
     Dosage: 50 MILLIGRAM
     Route: 065
  6. ZOLEDRONOC ACID [Concomitant]
     Dosage: 4 MILLIGRAM
     Route: 065
     Dates: start: 20110330
  7. ACYCLOVIR [Concomitant]
     Dosage: 200 MILLIGRAM
     Route: 048
     Dates: start: 20120131
  8. REVLIMID [Suspect]
     Dosage: 15 MILLIGRAM
     Route: 048
     Dates: start: 20100601, end: 20100101
  9. ASPIRIN [Concomitant]
     Dosage: 325 MILLIGRAM
     Route: 048
     Dates: start: 20101013
  10. MIRALAX [Concomitant]
     Dosage: 17 GRAM
     Route: 048
     Dates: start: 20101013
  11. MULTI-VITAMINS [Concomitant]
     Dosage: 1 TABLET
     Route: 048
     Dates: start: 20101013
  12. OXYCONTIN [Concomitant]
     Indication: PAIN MANAGEMENT
     Dosage: 20 MILLIGRAM
     Route: 048
     Dates: start: 20101013
  13. CYCLOPHOSPHAMIDE [Concomitant]
     Route: 065
     Dates: start: 20110525
  14. ZITHROMAX [Concomitant]
     Dosage: 250 MILLIGRAM
     Route: 048
     Dates: start: 20110427, end: 20110525
  15. MIRALAX [Concomitant]
     Route: 065
  16. VELCADE [Concomitant]
     Route: 065
     Dates: start: 20110525
  17. TAMSULOSIN HCL [Concomitant]
     Dosage: .4 MILLIGRAM
     Route: 048
     Dates: start: 20101013
  18. REVLIMID [Suspect]
     Dosage: 25 MILLIGRAM
     Route: 048
     Dates: start: 20100801, end: 20110101
  19. OMEPRAZOLE [Concomitant]
     Dosage: 40 MILLIGRAM
     Route: 048
     Dates: start: 20110525
  20. PROCHLORPERAZINE [Concomitant]
     Indication: NAUSEA
     Dosage: 10 MILLIGRAM
     Route: 048
  21. VENLAFAXINE [Concomitant]
     Indication: DEPRESSION
     Dosage: 75 MILLIGRAM
     Route: 048
     Dates: start: 20101013
  22. CYTOXAN [Concomitant]
     Route: 065
  23. RED BLOOD CELLS [Concomitant]
     Dosage: 2 UNITS
     Route: 065
     Dates: start: 20120101
  24. DEXAMETHASONE [Concomitant]
     Dosage: 20 MILLIGRAM
     Route: 048
     Dates: start: 20110525
  25. ZOLEDRONIC ACID [Concomitant]
  26. REVLIMID [Suspect]
     Indication: MULTIPLE MYELOMA
     Dosage: 10 MILLIGRAM
     Route: 048
     Dates: start: 20100301, end: 20100101
  27. FINASTERIDE [Concomitant]
     Dosage: 5 MILLIGRAM
     Route: 048
     Dates: start: 20101110
  28. MAGNESIUM OXIDE [Concomitant]
     Dosage: 400 MILLIGRAM
     Route: 048
     Dates: start: 20101013
  29. DECADRON PHOSPHATE [Concomitant]
     Route: 065
     Dates: start: 20110525
  30. PANTOPRAZOLE SODIUM [Concomitant]
     Dosage: 40 MILLIGRAM
     Route: 048
     Dates: start: 20101110
  31. LORATADINE [Concomitant]
     Dosage: 10 MILLIGRAM
     Route: 065
     Dates: start: 20101013
  32. AMOXICILLIN [Concomitant]
     Dosage: 500 MILLIGRAM
     Route: 048
     Dates: start: 20110427, end: 20110525

REACTIONS (1)
  - MULTIPLE MYELOMA [None]
